FAERS Safety Report 9125789 (Version 1)
Quarter: 2013Q1

REPORT INFORMATION
  Report Type: Spontaneous
  Country: US (occurrence: US)
  Receive Date: 20130228
  Receipt Date: 20130228
  Transmission Date: 20140127
  Serious: No
  Sender: FDA-Public Use
  Company Number: US-009507513-1302USA011189

PATIENT
  Age: 17 Year
  Sex: Female
  Weight: 72.56 kg

DRUGS (2)
  1. IMPLANON [Suspect]
     Indication: CONTRACEPTION
     Dosage: 1 68 MG ROD UP TO 3 YEARS
     Dates: start: 20110603
  2. IMPLANON [Suspect]
     Indication: MENSTRUAL CYCLE MANAGEMENT

REACTIONS (2)
  - Device dislocation [Unknown]
  - Implant site pain [Unknown]
